FAERS Safety Report 21713695 (Version 2)
Quarter: 2023Q2

REPORT INFORMATION
  Report Type: Spontaneous
  Country: US (occurrence: US)
  Receive Date: 20221212
  Receipt Date: 20230501
  Transmission Date: 20230722
  Serious: Yes (Hospitalization)
  Sender: FDA-Public Use
  Company Number: US-PFIZER INC-PV202200095295

PATIENT
  Age: 54 Year
  Sex: Female

DRUGS (1)
  1. INLYTA [Suspect]
     Active Substance: AXITINIB
     Dosage: UNK
     Dates: end: 20230412

REACTIONS (6)
  - Headache [Unknown]
  - Rash [Unknown]
  - Pain [Unknown]
  - Arthralgia [Unknown]
  - Nausea [Unknown]
  - Muscle spasms [Unknown]
